FAERS Safety Report 19815133 (Version 1)
Quarter: 2021Q3

REPORT INFORMATION
  Report Type: Report from Study
  Country: US (occurrence: US)
  Receive Date: 20210910
  Receipt Date: 20210910
  Transmission Date: 20211014
  Serious: Yes (Death, Hospitalization, Other)
  Sender: FDA-Public Use
  Company Number: US-B.I. PHARMACEUTICALS,INC./RIDGEFIELD-2020-BI-006182

PATIENT
  Sex: Male

DRUGS (1)
  1. OFEV [Suspect]
     Active Substance: NINTEDANIB
     Indication: IDIOPATHIC PULMONARY FIBROSIS
     Dosage: OTHER LOT NOS: 901708,1098,901709, 905871, 005226
     Route: 048
     Dates: start: 20200128

REACTIONS (15)
  - Lung neoplasm malignant [Unknown]
  - Headache [Unknown]
  - Decreased appetite [Unknown]
  - Abdominal distension [Not Recovered/Not Resolved]
  - Idiopathic pulmonary fibrosis [Fatal]
  - Gastric disorder [Unknown]
  - Dyspnoea [Not Recovered/Not Resolved]
  - Nausea [Unknown]
  - Productive cough [Unknown]
  - Weight decreased [Unknown]
  - Abdominal discomfort [Unknown]
  - Dyspnoea [Unknown]
  - Pneumonia [Unknown]
  - Muscle spasms [Unknown]
  - Nasal congestion [Unknown]
